FAERS Safety Report 13335525 (Version 1)
Quarter: 2017Q1

REPORT INFORMATION
  Report Type: Spontaneous
  Country: ES (occurrence: ES)
  Receive Date: 20170314
  Receipt Date: 20170314
  Transmission Date: 20170428
  Serious: Yes (Death, Congenital Anomaly)
  Sender: FDA-Public Use
  Company Number: ES-CMP PHARMA-2017CMP00007

PATIENT

DRUGS (3)
  1. PYRAZINAMIDE. [Concomitant]
     Active Substance: PYRAZINAMIDE
     Route: 064
  2. ISONIAZID. [Suspect]
     Active Substance: ISONIAZID
     Indication: TUBERCULOSIS
     Dosage: 5 MG/KG, 1X/DAY
     Route: 064
  3. RIFAMPICIN [Suspect]
     Active Substance: RIFAMPIN
     Indication: TUBERCULOSIS
     Dosage: 10 MG/KG, 1X/DAY
     Route: 064

REACTIONS (3)
  - Abortion induced [Fatal]
  - Foetal exposure during pregnancy [Not Recovered/Not Resolved]
  - Head deformity [Not Recovered/Not Resolved]
